FAERS Safety Report 4884780-7 (Version None)
Quarter: 2006Q1

REPORT INFORMATION
  Report Type: 
  Country: None (occurrence: None)
  Receive Date: 20060117
  Receipt Date: 20060104
  Transmission Date: 20060701
  Serious: Yes (Disabling, Other)
  Sender: FDA-Public Use
  Company Number: 2006002498

PATIENT
  Age: 63 Year
  Sex: Female
  Weight: 99.7913 kg

DRUGS (16)
  1. LIPITOR [Suspect]
     Indication: BLOOD CHOLESTEROL INCREASED
     Dosage: 10 MG (10 MG, 1 IN 1 D), ORAL
     Route: 048
     Dates: start: 20050701, end: 20060102
  2. LEVOXYL [Concomitant]
  3. OMEPRAZOLE [Concomitant]
  4. COZAAR [Concomitant]
  5. FEMHRT [Concomitant]
  6. CILOXAN (CIPROFLOXACIN HYDROCHLORIDE) [Concomitant]
  7. QUIXIN [Concomitant]
  8. MOXIFLOXACIN HCL [Concomitant]
  9. ECONOPRED (PREDNISOLONE ACETATE) [Concomitant]
  10. PREDNISONE [Concomitant]
  11. CALCIUM WITH VITAMIN D (CALCIUM PHOSPHATE, CALCIUM SODIUM LACTATE, ERG [Concomitant]
  12. MAGNESIUM (MAGNESIUM) [Concomitant]
  13. VITAMIN C (VITAMIN C) [Concomitant]
  14. STRESSTABS (VITAMINS NOS) [Concomitant]
  15. IBUPROFEN [Concomitant]
  16. ASPIRIN [Concomitant]

REACTIONS (17)
  - ABASIA [None]
  - ANXIETY [None]
  - ARTHRALGIA [None]
  - ASTHENIA [None]
  - BLOOD THYROID STIMULATING HORMONE DECREASED [None]
  - CARDIOVASCULAR DISORDER [None]
  - CHEST PAIN [None]
  - DYSPEPSIA [None]
  - FATIGUE [None]
  - FEELING ABNORMAL [None]
  - FRUSTRATION [None]
  - INSOMNIA [None]
  - MUSCULAR WEAKNESS [None]
  - MYALGIA [None]
  - PAIN [None]
  - PARALYSIS [None]
  - PYREXIA [None]
